FAERS Safety Report 18221651 (Version 1)
Quarter: 2020Q3

REPORT INFORMATION
  Report Type: Spontaneous
  Country: US (occurrence: US)
  Receive Date: 20200901
  Receipt Date: 20200901
  Transmission Date: 20201103
  Serious: Yes (Disabling)
  Sender: FDA-Public Use
  Company Number: None

PATIENT
  Age: 44 Year
  Sex: Female

DRUGS (1)
  1. LUPRON DEPOT [Suspect]
     Active Substance: LEUPROLIDE ACETATE
     Indication: ENDOMETRIOSIS
     Route: 008
     Dates: start: 20060704, end: 20080907

REACTIONS (3)
  - Degenerative bone disease [None]
  - Intervertebral disc protrusion [None]
  - Back pain [None]

NARRATIVE: CASE EVENT DATE: 20200129
